FAERS Safety Report 4703469-8 (Version None)
Quarter: 2005Q2

REPORT INFORMATION
  Report Type: 
  Country: None (occurrence: None)
  Receive Date: 20050630
  Receipt Date: 20050321
  Transmission Date: 20051028
  Serious: Yes (Disabling, Other)
  Sender: FDA-Public Use
  Company Number: GB-RB-1419-2005

PATIENT
  Age: 24 Year
  Sex: Female

DRUGS (1)
  1. BUPRENORPHINE HCL [Suspect]
     Route: 060
     Dates: start: 20041001, end: 20050401

REACTIONS (3)
  - DISEASE RECURRENCE [None]
  - DRUG DEPENDENCE [None]
  - PSYCHOTIC DISORDER [None]
